FAERS Safety Report 12039410 (Version 1)
Quarter: 2016Q1

REPORT INFORMATION
  Report Type: Spontaneous
  Country: US (occurrence: None)
  Receive Date: 20160205
  Receipt Date: 20160205
  Transmission Date: 20160526
  Serious: Yes (Hospitalization)
  Sender: FDA-Public Use
  Company Number: None

PATIENT
  Age: 68 Year
  Sex: Male
  Weight: 73.94 kg

DRUGS (23)
  1. HYDROMORPHONE (DILAUDID) [Concomitant]
  2. CALCIUM CITRATE [Concomitant]
     Active Substance: CALCIUM CITRATE
  3. OMEPRAZOLE (PRILOSEC) [Concomitant]
  4. PREDNISONE (DELTASONE) [Concomitant]
  5. ABIRATERONE 250 MG JANSSEN [Suspect]
     Active Substance: ABIRATERONE
     Indication: PROSTATE CANCER
     Route: 048
     Dates: start: 20150305, end: 20150305
  6. SENNA-DOCUSATE (SENNA PLUS) [Concomitant]
  7. COUMADIN [Concomitant]
     Active Substance: WARFARIN SODIUM
  8. TYLENOL [Concomitant]
     Active Substance: ACETAMINOPHEN
  9. NORVASC [Concomitant]
     Active Substance: AMLODIPINE BESYLATE
  10. PYRIDOXINE (B-6) [Concomitant]
  11. LOVENOX [Concomitant]
     Active Substance: ENOXAPARIN SODIUM
  12. DRONABINOL (MARINOL) [Concomitant]
  13. ASPIRIN. [Concomitant]
     Active Substance: ASPIRIN
  14. LIPITOR [Concomitant]
     Active Substance: ATORVASTATIN CALCIUM
  15. MAGNESIUM OXIDE (MAG-OX) [Concomitant]
  16. CABAZITAXEL 60 ML SANOFI [Suspect]
     Active Substance: CABAZITAXEL
     Indication: PROSTATE CANCER
     Dosage: 49.3 ML 21 DAYS INTRAVENOUS
     Route: 042
     Dates: start: 20150224, end: 20150224
  17. OXYCODONE (OXYCONTIN) [Concomitant]
  18. CHOLECALCIFEROL (VITAMIN D) [Concomitant]
  19. FERROUS SULFATE [Concomitant]
     Active Substance: FERROUS SULFATE\FERROUS SULFATE, DRIED
  20. METOPROLOL TARTRATE (LOPRESSOR) [Concomitant]
  21. GLUCOSAMINE SULFATE (GLUCOSAMINE PO) [Concomitant]
  22. PROCHLORPERAZINE (COMPAZINE) [Concomitant]
  23. CALCIUM CARBONATE. [Concomitant]
     Active Substance: CALCIUM CARBONATE

REACTIONS (4)
  - Hip fracture [None]
  - Pathological fracture [None]
  - Femoral neck fracture [None]
  - Infection [None]

NARRATIVE: CASE EVENT DATE: 20150303
